FAERS Safety Report 5363650-4 (Version None)
Quarter: 2007Q2

REPORT INFORMATION
  Report Type: 
  Country: None (occurrence: None)
  Receive Date: 20070618
  Receipt Date: 20070618
  Transmission Date: 20071010
  Serious: Yes (Other)
  Sender: FDA-Public Use
  Company Number: None

PATIENT
  Age: 41 Year
  Sex: Female

DRUGS (1)
  1. DEPAKOTE [Suspect]
     Indication: CONVULSION
     Dosage: 1500 MG DAILY PO
     Route: 048
     Dates: start: 20070514, end: 20070527

REACTIONS (5)
  - CRYING [None]
  - NODULE [None]
  - PALATAL DISORDER [None]
  - RASH PAPULAR [None]
  - SOMNOLENCE [None]
